FAERS Safety Report 14675482 (Version 1)
Quarter: 2018Q1

REPORT INFORMATION
  Report Type: Spontaneous
  Country: PR (occurrence: PR)
  Receive Date: 20180323
  Receipt Date: 20180323
  Transmission Date: 20180509
  Serious: Yes (Death, Hospitalization, Other)
  Sender: FDA-Public Use
  Company Number: PR-WEST-WARD PHARMACEUTICALS CORP.-PR-H14001-18-02076

PATIENT
  Age: 77 Year
  Sex: Male

DRUGS (1)
  1. DEXAMETHASONE. [Suspect]
     Active Substance: DEXAMETHASONE
     Indication: MENINGIOMA
     Dosage: ()
     Route: 065

REACTIONS (8)
  - Colitis [Fatal]
  - Hepatic enzyme increased [Fatal]
  - Strongyloidiasis [Fatal]
  - Respiratory failure [Fatal]
  - Shock [Fatal]
  - Urticaria [Fatal]
  - Hypoxia [Fatal]
  - Sepsis [Fatal]
